FAERS Safety Report 9467894 (Version 1)
Quarter: 2013Q3

REPORT INFORMATION
  Report Type: Spontaneous
  Country: US (occurrence: None)
  Receive Date: 20130819
  Receipt Date: 20130819
  Transmission Date: 20140515
  Serious: No
  Sender: FDA-Public Use
  Company Number: None

PATIENT
  Sex: 0

DRUGS (2)
  1. METOPROLOL TARTRATE [Suspect]
     Dosage: METOPROLOL TARTRATE METOPROLOL TARTRATE TABLET ORAL 50 MG
     Route: 048
  2. METOPROLOL SUCCINATE [Suspect]
     Dosage: METOPROLOL SUCCINATE EXTENDED RELEASE METOPROLOL SUCCINATE TABLET ORAL 50 MG
     Route: 048

REACTIONS (2)
  - Medication error [None]
  - Intercepted medication error [None]
